FAERS Safety Report 10652863 (Version 1)
Quarter: 2014Q4

REPORT INFORMATION
  Report Type: Report from Study
  Country: US (occurrence: US)
  Receive Date: 20141215
  Receipt Date: 20141215
  Transmission Date: 20150529
  Serious: Yes (Hospitalization)
  Sender: FDA-Public Use
  Company Number: US-EISAI MEDICAL RESEARCH-EC-2014-002267

PATIENT
  Age: 51 Year
  Sex: Male

DRUGS (8)
  1. CETUXIMAB [Suspect]
     Active Substance: CETUXIMAB
     Indication: HEAD AND NECK CANCER
     Route: 041
     Dates: start: 20140924, end: 20141119
  2. BISACODYL. [Concomitant]
     Active Substance: BISACODYL
  3. SENNA SYRUP [Concomitant]
     Active Substance: SENNOSIDES
  4. DURAGESIC [Concomitant]
     Active Substance: FENTANYL
  5. MORPHINE [Concomitant]
     Active Substance: MORPHINE
  6. JEVITY [Concomitant]
     Active Substance: DIETARY SUPPLEMENT
  7. ERIBULIN [Suspect]
     Active Substance: ERIBULIN
     Indication: HEAD AND NECK CANCER
     Route: 041
     Dates: start: 20140924, end: 20141112
  8. STEROIDS [Suspect]
     Active Substance: UNSPECIFIED INGREDIENT
     Indication: PRODUCT USED FOR UNKNOWN INDICATION
     Dosage: UNKNOWN

REACTIONS (5)
  - Babesiosis [Unknown]
  - Respiratory tract oedema [Unknown]
  - Thrombocytopenia [Unknown]
  - Dysphagia [Unknown]
  - Haemolytic anaemia [Recovering/Resolving]

NARRATIVE: CASE EVENT DATE: 2014
